FAERS Safety Report 6158553-1 (Version None)
Quarter: 2009Q2

REPORT INFORMATION
  Report Type: 
  Country: None (occurrence: None)
  Receive Date: 20090415
  Receipt Date: 20090415
  Transmission Date: 20091009
  Serious: Yes (Other)
  Sender: FDA-Public Use
  Company Number: None

PATIENT
  Age: 14 Month
  Sex: Female
  Weight: 8.6183 kg

DRUGS (1)
  1. METOCLOPRAMIDE [Suspect]
     Indication: OESOPHAGOGASTRIC FUNDOPLASTY
     Dosage: 12 MG -12ML- 4 TIMES DAILY OTHER
     Route: 050
     Dates: start: 20070531, end: 20070604

REACTIONS (10)
  - ABNORMAL BEHAVIOUR [None]
  - CONDITION AGGRAVATED [None]
  - DRUG DISPENSING ERROR [None]
  - GASTROOESOPHAGEAL REFLUX DISEASE [None]
  - INCORRECT DOSE ADMINISTERED [None]
  - MEDICATION ERROR [None]
  - MUSCLE TIGHTNESS [None]
  - STARING [None]
  - UNRESPONSIVE TO STIMULI [None]
  - VOMITING [None]
